FAERS Safety Report 20891941 (Version 4)
Quarter: 2022Q3

REPORT INFORMATION
  Report Type: Spontaneous
  Country: US (occurrence: US)
  Receive Date: 20220530
  Receipt Date: 20220803
  Transmission Date: 20221026
  Serious: No
  Sender: FDA-Public Use
  Company Number: US-NOVARTISTESTPH-NVSC2022US124289

PATIENT
  Sex: Male

DRUGS (2)
  1. VOTRIENT [Suspect]
     Active Substance: PAZOPANIB HYDROCHLORIDE
     Indication: Bone cancer
     Dosage: 800 MG, QD
     Route: 048
     Dates: start: 201912
  2. VOTRIENT [Suspect]
     Active Substance: PAZOPANIB HYDROCHLORIDE
     Indication: Chondrosarcoma
     Dosage: 800 MG, QD (BY MOUTH)
     Route: 048
     Dates: start: 20191227

REACTIONS (5)
  - Skin exfoliation [Unknown]
  - Pain in extremity [Unknown]
  - Tenderness [Unknown]
  - Burning sensation [Unknown]
  - Arthralgia [Unknown]
